FAERS Safety Report 9137853 (Version 1)
Quarter: 2013Q1

REPORT INFORMATION
  Report Type: Spontaneous
  Country: US (occurrence: US)
  Receive Date: 20130304
  Receipt Date: 20130304
  Transmission Date: 20140127
  Serious: No
  Sender: FDA-Public Use
  Company Number: US-ABBOTT-12P-163-0947589-00

PATIENT
  Sex: Male
  Weight: 93.07 kg

DRUGS (3)
  1. ANDROGEL 1% [Suspect]
     Indication: BLOOD TESTOSTERONE DECREASED
     Dosage: 3 PUMPS A DAY
     Dates: start: 2010, end: 201203
  2. ANDROGEL 1% [Suspect]
     Dosage: 5 PUMPS A DAY
     Dates: start: 201203
  3. UNKNOWN HIGH BLOOD PRESSURE MEDICATION [Concomitant]
     Indication: PRODUCT USED FOR UNKNOWN INDICATION

REACTIONS (3)
  - Drug administered at inappropriate site [None]
  - Acne [Not Recovered/Not Resolved]
  - Irritability [Not Recovered/Not Resolved]
